FAERS Safety Report 9323053 (Version 1)
Quarter: 2013Q2

REPORT INFORMATION
  Report Type: Spontaneous
  Country: CH (occurrence: CH)
  Receive Date: 20130603
  Receipt Date: 20130603
  Transmission Date: 20140414
  Serious: Yes (Death, Hospitalization)
  Sender: FDA-Public Use
  Company Number: CH-ROCHE-1231000

PATIENT
  Age: 87 Year
  Sex: Male

DRUGS (3)
  1. LUCENTIS [Suspect]
     Indication: MACULAR DEGENERATION
     Route: 031
     Dates: start: 20100309, end: 20130227
  2. NORVASC [Concomitant]
  3. MORPHINE [Concomitant]

REACTIONS (2)
  - Myocardial infarction [Fatal]
  - Oedema due to cardiac disease [Fatal]
